FAERS Safety Report 23394810 (Version 1)
Quarter: 2024Q1

REPORT INFORMATION
  Report Type: Spontaneous
  Country: GB (occurrence: GB)
  Receive Date: 20240112
  Receipt Date: 20240112
  Transmission Date: 20240409
  Serious: Yes (Other)
  Sender: FDA-Public Use
  Company Number: GB-PFIZER INC-PV202400001221

PATIENT
  Age: 79 Year
  Sex: Female

DRUGS (1)
  1. ENBREL [Suspect]
     Active Substance: ETANERCEPT
     Indication: Rheumatoid arthritis
     Dosage: 50 MG, WEEKLY
     Route: 058

REACTIONS (11)
  - Fall [Unknown]
  - Ankle fracture [Unknown]
  - Gait disturbance [Unknown]
  - Craniofacial fracture [Unknown]
  - Head injury [Unknown]
  - Peripheral swelling [Unknown]
  - Skin hypertrophy [Unknown]
  - Fluid retention [Unknown]
  - Pain [Unknown]
  - Shoulder deformity [Unknown]
  - Therapeutic response unexpected [Unknown]

NARRATIVE: CASE EVENT DATE: 20230101
